FAERS Safety Report 5522300-4 (Version None)
Quarter: 2007Q4

REPORT INFORMATION
  Report Type: 
  Country: None (occurrence: None)
  Receive Date: 20071120
  Receipt Date: 20071109
  Transmission Date: 20080405
  Serious: Yes (Hospitalization)
  Sender: FDA-Public Use
  Company Number: HQWYE260504JUN04

PATIENT
  Sex: Female

DRUGS (3)
  1. PREMPRO [Suspect]
     Dosage: UNKNOWN
     Route: 048
     Dates: start: 19810101, end: 20010101
  2. CYCRIN [Suspect]
     Dosage: UNKNOWN
     Dates: start: 19810101, end: 20010101
  3. PREMARIN [Suspect]
     Dosage: UNKNOWN
     Route: 048
     Dates: start: 19810101, end: 20010101

REACTIONS (3)
  - CORONARY ARTERY THROMBOSIS [None]
  - MYOCARDIAL INFARCTION [None]
  - THROMBOSIS [None]
